FAERS Safety Report 5805795-8 (Version None)
Quarter: 2008Q3

REPORT INFORMATION
  Report Type: 
  Country: None (occurrence: None)
  Receive Date: 20080709
  Receipt Date: 20080709
  Transmission Date: 20090109
  Serious: Yes (Hospitalization)
  Sender: FDA-Public Use
  Company Number: None

PATIENT
  Age: 61 Year
  Sex: Male
  Weight: 102.1 kg

DRUGS (1)
  1. MERCAPTOPURINE [Suspect]
     Indication: INFLAMMATORY BOWEL DISEASE
     Dosage: 50 MG BID PO
     Route: 048
     Dates: start: 20040526, end: 20080405

REACTIONS (12)
  - ABDOMINAL PAIN UPPER [None]
  - BLOOD BILIRUBIN UNCONJUGATED INCREASED [None]
  - FLATULENCE [None]
  - GASTRITIS [None]
  - GASTROINTESTINAL HAEMORRHAGE [None]
  - HAEMATOCHEZIA [None]
  - HYPOPHAGIA [None]
  - NAUSEA [None]
  - PANCYTOPENIA [None]
  - PEPTIC ULCER [None]
  - STRESS [None]
  - THROMBOCYTOPENIA [None]
